FAERS Safety Report 11199737 (Version 4)
Quarter: 2017Q3

REPORT INFORMATION
  Report Type: Report from Study
  Country: US (occurrence: US)
  Receive Date: 20150618
  Receipt Date: 20170728
  Transmission Date: 20171127
  Serious: Yes (Hospitalization, Other)
  Sender: FDA-Public Use
  Company Number: US-SA-2015SA085285

PATIENT
  Age: 36 Year
  Sex: Female

DRUGS (4)
  1. AUBAGIO [Suspect]
     Active Substance: TERIFLUNOMIDE
     Indication: MULTIPLE SCLEROSIS
     Dosage: STRENGTH 7 MG
     Route: 048
     Dates: start: 201503
  2. AUBAGIO [Suspect]
     Active Substance: TERIFLUNOMIDE
     Indication: MULTIPLE SCLEROSIS
     Dosage: DOSE- 7 MG/DAY
     Route: 048
     Dates: start: 201511, end: 201512
  3. AUBAGIO [Suspect]
     Active Substance: TERIFLUNOMIDE
     Indication: MULTIPLE SCLEROSIS
     Dosage: DOSE- 14
     Route: 048
     Dates: start: 20150406, end: 20150609
  4. AUBAGIO [Suspect]
     Active Substance: TERIFLUNOMIDE
     Indication: MULTIPLE SCLEROSIS
     Dosage: DOSE- 7 MG/DAY
     Route: 048
     Dates: start: 2015, end: 2015

REACTIONS (25)
  - Multiple sclerosis relapse [Not Recovered/Not Resolved]
  - Fatigue [Not Recovered/Not Resolved]
  - Blood pressure abnormal [Not Recovered/Not Resolved]
  - Depression [Not Recovered/Not Resolved]
  - Alopecia [Recovering/Resolving]
  - Hypotension [Unknown]
  - Multiple sclerosis [Not Recovered/Not Resolved]
  - Hypoaesthesia [Not Recovered/Not Resolved]
  - Insomnia [Unknown]
  - Dyspnoea [Unknown]
  - Dehydration [Not Recovered/Not Resolved]
  - Blood glucose decreased [Recovered/Resolved]
  - Palpitations [Unknown]
  - Drug dose omission [Unknown]
  - Product use issue [Unknown]
  - Heart rate decreased [Unknown]
  - Cough [Unknown]
  - Head discomfort [Not Recovered/Not Resolved]
  - Malaise [Not Recovered/Not Resolved]
  - Depression [Unknown]
  - Decreased appetite [Not Recovered/Not Resolved]
  - Drug ineffective [Unknown]
  - Migraine [Recovered/Resolved]
  - Off label use [Unknown]
  - Unevaluable event [Unknown]

NARRATIVE: CASE EVENT DATE: 2015
